FAERS Safety Report 8914799 (Version 2)
Quarter: 2013Q1

REPORT INFORMATION
  Report Type: Spontaneous
  Country: US (occurrence: US)
  Receive Date: 20121119
  Receipt Date: 20130215
  Transmission Date: 20140127
  Serious: Yes (Death, Hospitalization)
  Sender: FDA-Public Use
  Company Number: US-INCYTE CORPORATION-2012IN002335

PATIENT
  Age: 72 Year
  Sex: Male
  Weight: 58.05 kg

DRUGS (1)
  1. JAKAFI [Suspect]
     Dosage: 10 MG, BID
     Route: 048
     Dates: start: 20121011, end: 20121011

REACTIONS (2)
  - Death [Fatal]
  - General physical health deterioration [Unknown]
